FAERS Safety Report 14959956 (Version 1)
Quarter: 2018Q2

REPORT INFORMATION
  Report Type: Spontaneous
  Country: FR (occurrence: FR)
  Receive Date: 20180531
  Receipt Date: 20180531
  Transmission Date: 20180711
  Serious: Yes (Other)
  Sender: FDA-Public Use
  Company Number: FR-GILEAD-2018-0341233

PATIENT
  Age: 30 Year
  Sex: Female
  Weight: 70 kg

DRUGS (1)
  1. TENOFOVIR ALAFENAMIDE [Suspect]
     Active Substance: TENOFOVIR ALAFENAMIDE
     Indication: CHRONIC HEPATITIS B
     Dosage: 245 MG
     Route: 065

REACTIONS (3)
  - Rash pruritic [Not Recovered/Not Resolved]
  - Oedema [Not Recovered/Not Resolved]
  - Abdominal pain [Not Recovered/Not Resolved]

NARRATIVE: CASE EVENT DATE: 201712
